FAERS Safety Report 8645077 (Version 2)
Quarter: 2012Q4

REPORT INFORMATION
  Report Type: 
  Country: US (occurrence: US)
  Receive Date: 20120702
  Receipt Date: 20121123
  Transmission Date: 20130627
  Serious: No
  Sender: FDA-Public Use
  Company Number: PHEH2012US012871

PATIENT
  Age: 66 Year
  Sex: Female

DRUGS (5)
  1. TASIGNA [Suspect]
     Indication: CHRONIC MYELOID LEUKAEMIA
     Dosage: 400 mg, BID
     Route: 048
     Dates: start: 20120427
  2. LEXAPRO [Concomitant]
  3. LIPITOR [Concomitant]
  4. GLIPIZIDE [Concomitant]
  5. JANUMET [Concomitant]

REACTIONS (3)
  - Fatigue [Unknown]
  - Rash generalised [Unknown]
  - Dizziness [Unknown]
